FAERS Safety Report 13100452 (Version 5)
Quarter: 2017Q4

REPORT INFORMATION
  Report Type: Report from Study
  Country: US (occurrence: US)
  Receive Date: 20170110
  Receipt Date: 20171205
  Transmission Date: 20180320
  Serious: Yes (Other)
  Sender: FDA-Public Use
  Company Number: US-AMGEN-USASL2017001492

PATIENT
  Sex: Female

DRUGS (2)
  1. METHOTREXATE. [Concomitant]
     Active Substance: METHOTREXATE
     Indication: PSORIATIC ARTHROPATHY
     Dosage: 15 MG, QWK
  2. ENBREL [Suspect]
     Active Substance: ETANERCEPT
     Indication: PSORIATIC ARTHROPATHY
     Dosage: 50 MG, QWK
     Route: 058
     Dates: start: 20150101

REACTIONS (13)
  - Psoriatic arthropathy [Unknown]
  - White blood cell count decreased [Unknown]
  - Visual impairment [Unknown]
  - Laceration [Unknown]
  - Erythema [Unknown]
  - Aphthous ulcer [Recovered/Resolved]
  - Contusion [Not Recovered/Not Resolved]
  - Skin atrophy [Unknown]
  - Skin irritation [Unknown]
  - Increased tendency to bruise [Not Recovered/Not Resolved]
  - Haemorrhage [Unknown]
  - Swelling [Unknown]
  - Bleeding time prolonged [Recovered/Resolved]

NARRATIVE: CASE EVENT DATE: 2015
